FAERS Safety Report 6279912-2 (Version None)
Quarter: 2009Q3

REPORT INFORMATION
  Report Type: 
  Country: None (occurrence: None)
  Receive Date: 20090723
  Receipt Date: 20090521
  Transmission Date: 20100115
  Serious: No
  Sender: FDA-Public Use
  Company Number: US-AMGEN-KDL346267

PATIENT
  Age: 83 Year
  Sex: Female

DRUGS (19)
  1. PROCRIT [Suspect]
     Indication: ANAEMIA
     Dates: start: 20040101, end: 20090512
  2. COLCHICINE [Concomitant]
  3. BUMEX [Concomitant]
     Route: 048
  4. AVAPRO [Concomitant]
  5. ASPIRIN [Concomitant]
  6. COREG [Concomitant]
     Route: 048
  7. HYDRALAZINE HCL [Concomitant]
  8. MYSOLINE [Concomitant]
     Route: 048
  9. VALIUM [Concomitant]
  10. CALCITRIOL [Concomitant]
  11. FERROUS SULFATE TAB [Concomitant]
  12. LIPITOR [Concomitant]
  13. ALLOPURINOL [Concomitant]
  14. FOLIC ACID [Concomitant]
  15. ROTOCAL [Concomitant]
  16. ALISKIREN [Concomitant]
     Route: 048
  17. XALATAN [Concomitant]
  18. TYLENOL W/ CODEINE [Concomitant]
  19. COSOPT [Concomitant]

REACTIONS (9)
  - ALOPECIA [None]
  - CONSTIPATION [None]
  - HYPERTENSION [None]
  - IRRITABILITY [None]
  - LYMPHOEDEMA [None]
  - OEDEMA PERIPHERAL [None]
  - PRURITUS [None]
  - RASH PRURITIC [None]
  - THERAPEUTIC RESPONSE DECREASED [None]
